FAERS Safety Report 18533914 (Version 1)
Quarter: 2020Q4

REPORT INFORMATION
  Report Type: Spontaneous
  Country: US (occurrence: US)
  Receive Date: 20201123
  Receipt Date: 20201123
  Transmission Date: 20210114
  Serious: No
  Sender: FDA-Public Use
  Company Number: US-BRACCO-2020US02288

PATIENT
  Age: 67 Year
  Sex: Female

DRUGS (3)
  1. SALINE                             /00075401/ [Concomitant]
     Active Substance: SODIUM CHLORIDE
     Dosage: 5 ML
     Dates: start: 20200602, end: 20200602
  2. LUMASON [Suspect]
     Active Substance: SULFUR HEXAFLUORIDE
     Indication: STRESS ECHOCARDIOGRAM
     Dosage: 1 ML, SINGLE
     Dates: start: 20200602, end: 20200602
  3. LUMASON [Suspect]
     Active Substance: SULFUR HEXAFLUORIDE
     Indication: STRESS ECHOCARDIOGRAM
     Dosage: 1 ML, SINGLE
     Dates: start: 20200602, end: 20200602

REACTIONS (1)
  - Aura [Recovered/Resolved]

NARRATIVE: CASE EVENT DATE: 20200602
